FAERS Safety Report 6131260-7 (Version None)
Quarter: 2009Q1

REPORT INFORMATION
  Report Type: 
  Country: None (occurrence: None)
  Receive Date: 20090325
  Receipt Date: 20080514
  Transmission Date: 20090719
  Serious: Yes (Other)
  Sender: FDA-Public Use
  Company Number: US-BRISTOL-MYERS SQUIBB COMPANY-14072581

PATIENT
  Age: 56 Year
  Sex: Female

DRUGS (5)
  1. ERBITUX [Suspect]
     Indication: COLON CANCER STAGE IV
     Route: 042
     Dates: start: 20050501, end: 20080201
  2. BEVACIZUMAB [Suspect]
     Indication: COLON CANCER STAGE IV
     Route: 042
  3. DIGOXIN [Concomitant]
     Route: 048
  4. SPIRONOLACTONE [Concomitant]
  5. PROTONIX [Concomitant]
     Route: 048

REACTIONS (1)
  - HYPOMAGNESAEMIA [None]
